FAERS Safety Report 4928572-9 (Version None)
Quarter: 2006Q1

REPORT INFORMATION
  Report Type: 
  Country: None (occurrence: None)
  Receive Date: 20060223
  Receipt Date: 20060210
  Transmission Date: 20060701
  Serious: No
  Sender: FDA-Public Use
  Company Number: B0411631A

PATIENT
  Age: 39 Year
  Sex: Female

DRUGS (4)
  1. FLOLAN [Suspect]
     Indication: PULMONARY HYPERTENSION
  2. BOSENTAN (BOSENTAN) [Suspect]
     Indication: PULMONARY HYPERTENSION
  3. WARFARIN SODIUM [Concomitant]
  4. SEMISODIUM VALPROATE [Concomitant]

REACTIONS (10)
  - ANTI-NEUTROPHIL CYTOPLASMIC ANTIBODY POSITIVE VASCULITIS [None]
  - FOCAL GLOMERULOSCLEROSIS [None]
  - HAEMOPTYSIS [None]
  - LEUKOCYTOCLASTIC VASCULITIS [None]
  - OEDEMA PERIPHERAL [None]
  - PLATELET COUNT DECREASED [None]
  - PROTEIN URINE PRESENT [None]
  - PULMONARY ALVEOLAR HAEMORRHAGE [None]
  - RED BLOOD CELL ABNORMALITY [None]
  - RED BLOOD CELLS URINE POSITIVE [None]
